FAERS Safety Report 13980183 (Version 2)
Quarter: 2017Q4

REPORT INFORMATION
  Report Type: Report from Study
  Country: GB (occurrence: GB)
  Receive Date: 20170917
  Receipt Date: 20171106
  Transmission Date: 20180321
  Serious: Yes (Other)
  Sender: FDA-Public Use
  Company Number: PHFR2017GB007674

PATIENT
  Sex: Male

DRUGS (5)
  1. COSENTYX [Suspect]
     Active Substance: SECUKINUMAB
     Dosage: 300 MG EVERY DAY FOR FIVE CONSECUTIVE DAYS
     Route: 065
     Dates: start: 201709
  2. COSENTYX [Suspect]
     Active Substance: SECUKINUMAB
     Dosage: 300 MG EVERY DAY FOR FIVE CONSECUTIVE DAYS
     Route: 065
     Dates: start: 201709
  3. COSENTYX [Suspect]
     Active Substance: SECUKINUMAB
     Indication: PSORIATIC ARTHROPATHY
     Dosage: 300 MG EVERY DAY FOR FIVE CONSECUTIVE DAYS
     Route: 065
     Dates: start: 201709
  4. COSENTYX [Suspect]
     Active Substance: SECUKINUMAB
     Dosage: 300 MG EVERY DAY FOR FIVE CONSECUTIVE DAYS
     Route: 065
     Dates: start: 201709
  5. COSENTYX [Suspect]
     Active Substance: SECUKINUMAB
     Dosage: 300 MG EVERY DAY FOR FIVE CONSECUTIVE DAYS
     Route: 065
     Dates: start: 201709

REACTIONS (2)
  - Inappropriate schedule of drug administration [Unknown]
  - Overdose [Unknown]
